FAERS Safety Report 17819125 (Version 2)
Quarter: 2020Q3

REPORT INFORMATION
  Report Type: Spontaneous
  Country: PL (occurrence: PL)
  Receive Date: 20200523
  Receipt Date: 20200707
  Transmission Date: 20201102
  Serious: Yes (Other)
  Sender: FDA-Public Use
  Company Number: NVSC2020PL141124

PATIENT
  Age: 45 Year
  Sex: Female

DRUGS (2)
  1. CARBOPLATIN. [Suspect]
     Active Substance: CARBOPLATIN
     Indication: ENDOMETRIAL ADENOCARCINOMA
     Dosage: UNK UNK, CYCLIC (21 DAY INTERVAL)
     Route: 065
     Dates: start: 2018
  2. PACLITAXEL. [Suspect]
     Active Substance: PACLITAXEL
     Indication: ENDOMETRIAL ADENOCARCINOMA
     Dosage: UNK UNK, CYCLIC (21 DAY INTERVAL)
     Route: 065
     Dates: start: 2018

REACTIONS (4)
  - Therapy non-responder [Unknown]
  - Deep vein thrombosis [Unknown]
  - Drug ineffective for unapproved indication [Unknown]
  - Condition aggravated [Unknown]
